FAERS Safety Report 7459334-9 (Version None)
Quarter: 2011Q2

REPORT INFORMATION
  Report Type: 
  Country: None (occurrence: None)
  Receive Date: 20110504
  Receipt Date: 20110504
  Transmission Date: 20111010
  Serious: Yes (Other)
  Sender: FDA-Public Use
  Company Number: None

PATIENT
  Sex: Female
  Weight: 69.4003 kg

DRUGS (1)
  1. AZATHIOPRINE [Suspect]
     Indication: AUTOIMMUNE DISORDER
     Dosage: 50 MG 1 PER DAY SINCE COMING ON MARKET TO REPLACE IMURAN

REACTIONS (2)
  - NEOPLASM SKIN [None]
  - SKIN CANCER [None]
